FAERS Safety Report 8192639-5 (Version None)
Quarter: 2012Q1

REPORT INFORMATION
  Report Type: 
  Country: None (occurrence: None)
  Receive Date: 20120221
  Receipt Date: 20120112
  Transmission Date: 20120608
  Serious: No
  Sender: FDA-Public Use
  Company Number: 1000027059

PATIENT
  Age: 80 Year
  Sex: Male

DRUGS (6)
  1. DIOVAN [Concomitant]
  2. NEXTUM (ESOMEPRAZOLE)(ESOMEPRAZOLE) [Concomitant]
  3. METFORMIN HCL [Concomitant]
  4. VIIBRYD [Suspect]
     Indication: DEPRESSION
     Dosage: 10 MG (10 MG,1 IN 1 D),ORAL  20 MG (20 MG, 1 IN 1 D),ORAL, 40 MG (40 MG, 1 IN 1 D),ORAL
     Route: 048
     Dates: start: 20111201
  5. VIIBRYD [Suspect]
     Indication: DEPRESSION
     Dosage: 10 MG (10 MG,1 IN 1 D),ORAL  20 MG (20 MG, 1 IN 1 D),ORAL, 40 MG (40 MG, 1 IN 1 D),ORAL
     Route: 048
     Dates: start: 20111201, end: 20111201
  6. TAMSULOS IN (TAMSULOSIN ) (TAMSULOS IN) [Concomitant]

REACTIONS (1)
  - DIARRHOEA [None]
